FAERS Safety Report 17878317 (Version 1)
Quarter: 2020Q2

REPORT INFORMATION
  Report Type: Spontaneous
  Country: US (occurrence: US)
  Receive Date: 20200610
  Receipt Date: 20200610
  Transmission Date: 20200714
  Serious: No
  Sender: FDA-Public Use
  Company Number: US-AUROBINDO-AUR-APL-2019-038130

PATIENT
  Sex: Female

DRUGS (1)
  1. ESOMEPRAZOLE. [Suspect]
     Active Substance: ESOMEPRAZOLE MAGNESIUM
     Indication: PRODUCT USED FOR UNKNOWN INDICATION
     Dosage: UNK AT NIGHT
     Route: 065

REACTIONS (3)
  - Swelling [Unknown]
  - Erythema [Unknown]
  - Oral pain [Unknown]

NARRATIVE: CASE EVENT DATE: 20190620
